FAERS Safety Report 7538241-7 (Version None)
Quarter: 2011Q2

REPORT INFORMATION
  Report Type: 
  Country: None (occurrence: None)
  Receive Date: 20110609
  Receipt Date: 20060118
  Transmission Date: 20111010
  Serious: Yes (Death)
  Sender: FDA-Public Use
  Company Number: PHBS2001AU02894

PATIENT
  Sex: Male

DRUGS (7)
  1. ACETAMINOPHEN [Concomitant]
     Dosage: UNKNOWN
  2. VANCOMYCIN [Concomitant]
     Dosage: UNKNOWN
  3. AMIKACIN [Concomitant]
     Dosage: UNKNOWN
  4. CLOZAPINE [Suspect]
     Dosage: 600 MG/D
     Route: 048
     Dates: start: 19970128
  5. ALBUTEROL [Concomitant]
     Dosage: UNKNOWN
  6. ACETAZOLAMIDE [Concomitant]
     Dosage: UNKNOWN
  7. FUROSEMIDE [Concomitant]
     Dosage: UNKNOWN

REACTIONS (3)
  - ASTHMA [None]
  - RESPIRATORY TRACT INFECTION [None]
  - EMPYEMA [None]
